FAERS Safety Report 6692935-4 (Version None)
Quarter: 2010Q2

REPORT INFORMATION
  Report Type: 
  Country: None (occurrence: None)
  Receive Date: 20100419
  Receipt Date: 20100406
  Transmission Date: 20101027
  Serious: Yes (Congenital Anomaly, Other)
  Sender: FDA-Public Use
  Company Number: LEO-2010-00265

PATIENT

DRUGS (1)
  1. TACLONEX [Suspect]
     Dosage: TRANSPLACENTAL,    DURING SEVERAL WEEKS
     Route: 064

REACTIONS (3)
  - ABORTION INDUCED [None]
  - MATERNAL DRUGS AFFECTING FOETUS [None]
  - SEX DIFFERENTIATION ABNORMAL [None]
